FAERS Safety Report 8018854-9 (Version None)
Quarter: 2012Q1

REPORT INFORMATION
  Report Type: 
  Country: None (occurrence: None)
  Receive Date: 20120103
  Receipt Date: 20111221
  Transmission Date: 20120608
  Serious: Yes (Other)
  Sender: FDA-Public Use
  Company Number: US-SANOFI-AVENTIS-2011SA084190

PATIENT
  Sex: Female

DRUGS (2)
  1. AFLIBERCEPT [Suspect]
     Route: 042
  2. DOCETAXEL [Suspect]
     Route: 042

REACTIONS (2)
  - CONFUSIONAL STATE [None]
  - TRANSIENT ISCHAEMIC ATTACK [None]
